FAERS Safety Report 5514361-3 (Version None)
Quarter: 2007Q4

REPORT INFORMATION
  Report Type: 
  Country: None (occurrence: None)
  Receive Date: 20071113
  Receipt Date: 20070924
  Transmission Date: 20080405
  Serious: Yes (Other)
  Sender: FDA-Public Use
  Company Number: A0648537A

PATIENT
  Age: 82 Year
  Weight: 71.4 kg

DRUGS (10)
  1. COREG [Suspect]
     Indication: AORTIC ANEURYSM
     Dosage: 6.25MG TWICE PER DAY
     Route: 048
     Dates: start: 20070101
  2. GLIPIZIDE [Concomitant]
  3. FUROSEMIDE [Concomitant]
  4. POTASSIUM CHLORIDE [Concomitant]
  5. LACTOBACILLUS [Concomitant]
  6. IRON [Concomitant]
  7. FINASTERIDE [Concomitant]
  8. WARFARIN SODIUM [Concomitant]
  9. VYTORIN [Concomitant]
  10. LOTREL [Concomitant]

REACTIONS (1)
  - HYPOGLYCAEMIA [None]
